FAERS Safety Report 7978604-9 (Version None)
Quarter: 2011Q4

REPORT INFORMATION
  Report Type: 
  Country: None (occurrence: None)
  Receive Date: 20111214
  Receipt Date: 20111206
  Transmission Date: 20120403
  Serious: Yes (Death)
  Sender: FDA-Public Use
  Company Number: DE-SANOFI-AVENTIS-2011SA080182

PATIENT
  Sex: Male

DRUGS (5)
  1. PLAVIX [Suspect]
     Route: 048
  2. HEPARIN SODIUM [Suspect]
  3. ACETYLSALICYLIC ACID SRT [Suspect]
  4. SIMVASTATIN [Concomitant]
  5. MINIRIN [Concomitant]
     Indication: POSTOPERATIVE CARE

REACTIONS (2)
  - HEPATIC ENZYME INCREASED [None]
  - HAEMATOMA [None]
